FAERS Safety Report 11569706 (Version 2)
Quarter: 2015Q3

REPORT INFORMATION
  Report Type: Spontaneous
  Country: US (occurrence: None)
  Receive Date: 20150928
  Receipt Date: 20150928
  Transmission Date: 20151125
  Serious: Yes (Disabling)
  Sender: FDA-Public Use
  Company Number: None

PATIENT
  Age: 50 Year
  Sex: Female
  Weight: 84.37 kg

DRUGS (1)
  1. LEVAQUIN [Suspect]
     Active Substance: LEVOFLOXACIN
     Indication: PHARYNGITIS STREPTOCOCCAL
     Dosage: 1 PILL
     Route: 048

REACTIONS (6)
  - Depression [None]
  - Toxicity to various agents [None]
  - Gait disturbance [None]
  - Pain [None]
  - Anxiety [None]
  - Disturbance in attention [None]
